FAERS Safety Report 8816086 (Version 1)
Quarter: 2012Q4

REPORT INFORMATION
  Report Type: 
  Country: JP (occurrence: JP)
  Receive Date: 20120928
  Receipt Date: 20120928
  Transmission Date: 20130627
  Serious: Yes (Other)
  Sender: FDA-Public Use
  Company Number: JP-PFIZER INC-2012234284

PATIENT
  Sex: Female

DRUGS (2)
  1. REVATIO [Suspect]
     Indication: PULMONARY HYPERTENSION
     Dosage: 10 mg, 3x/day
     Route: 048
  2. CARELOAD [Concomitant]
     Dosage: UNK
     Route: 048

REACTIONS (1)
  - Blood sodium decreased [Unknown]
